FAERS Safety Report 9840855 (Version 2)
Quarter: 2014Q1

REPORT INFORMATION
  Report Type: Report from Study
  Country: MX (occurrence: MX)
  Receive Date: 20140124
  Receipt Date: 20140124
  Transmission Date: 20141002
  Serious: Yes (Other)
  Sender: FDA-Public Use
  Company Number: PHHY2013MX129378

PATIENT
  Sex: Female

DRUGS (9)
  1. EXFORGE HCT [Suspect]
     Indication: HYPERTENSION
     Dosage: 1 DF (320/10/25), DAILY
     Route: 048
     Dates: start: 201307
  2. EXFORGE HCT [Suspect]
     Dosage: 1 DF (320/10/25), DAILY
     Route: 048
  3. METFORMIN [Concomitant]
     Indication: METABOLIC DISORDER
     Dosage: UNK UKN, UNK
  4. METOPROLOL [Concomitant]
     Indication: HYPERTENSION
     Dosage: 2 UKN, DAILY
     Dates: start: 201307
  5. ASPIRIN PROTECT [Concomitant]
     Indication: ISCHAEMIC HEART DISEASE PROPHYLAXIS
     Dosage: 1 UKN, DAILY
     Dates: start: 2012
  6. PRAZOSIN [Concomitant]
     Indication: HYPERTENSION
     Dosage: 2 UKN, EVERY 8 HOURS
     Dates: start: 201307
  7. OMEPRAZOLE [Concomitant]
     Indication: GASTRITIS
     Dosage: 1 UKN, UNK
     Dates: start: 201307
  8. PRAVASTATIN [Concomitant]
     Indication: BLOOD CHOLESTEROL
     Dosage: 1 UKN, UNK
     Dates: start: 201307
  9. DICLOFENAC [Concomitant]
     Dosage: 2 UKN, DAILY
     Dates: start: 201307

REACTIONS (9)
  - Fall [Not Recovered/Not Resolved]
  - Ligament rupture [Not Recovered/Not Resolved]
  - Micturition urgency [Not Recovered/Not Resolved]
  - Swelling [Not Recovered/Not Resolved]
  - Pain [Not Recovered/Not Resolved]
  - Decreased appetite [Not Recovered/Not Resolved]
  - Blood pressure decreased [Recovering/Resolving]
  - Weight increased [Not Recovered/Not Resolved]
  - Local swelling [Not Recovered/Not Resolved]
